FAERS Safety Report 7105415-9 (Version None)
Quarter: 2010Q4

REPORT INFORMATION
  Report Type: 
  Country: None (occurrence: None)
  Receive Date: 20101110
  Receipt Date: 20101025
  Transmission Date: 20110411
  Serious: Yes (Other)
  Sender: FDA-Public Use
  Company Number: JPI-P-012429

PATIENT
  Age: 39 Year
  Sex: Female
  Weight: 63.9572 kg

DRUGS (4)
  1. XYREM [Suspect]
     Indication: NARCOLEPSY
     Dosage: 5 GM (2.5 GM, 2 IN 1 D), ORAL
     Route: 048
     Dates: start: 20071018
  2. METHYLPHENIDATE AMPHETAMINE AND DEXTROAMPHETAMINE MIXED SALTS [Concomitant]
  3. AMPHETAMINE AND DEXTROAMPHETAMINE MIXED SALTS [Concomitant]
  4. HYDROCODONE BITARTRATE AND ACETAMINOPHEN [Concomitant]

REACTIONS (1)
  - UTERINE LEIOMYOMA [None]
